FAERS Safety Report 10548475 (Version 1)
Quarter: 2014Q4

REPORT INFORMATION
  Report Type: Spontaneous
  Country: JP (occurrence: JP)
  Receive Date: 20141028
  Receipt Date: 20141028
  Transmission Date: 20150529
  Serious: Yes (Death)
  Sender: FDA-Public Use
  Company Number: JP-MALLINCKRODT-T201403889

PATIENT
  Age: 44 Year
  Sex: Female
  Weight: 45 kg

DRUGS (11)
  1. METHADONE [Suspect]
     Active Substance: METHADONE HYDROCHLORIDE
     Dosage: 20 MG (DAILY DOSE 60 MG), UNK
     Route: 048
     Dates: start: 20140722, end: 20140725
  2. OPSO [Concomitant]
     Active Substance: MORPHINE HYDROCHLORIDE
     Dosage: 100 MG, PRN
     Route: 048
     Dates: start: 20140714
  3. BETAMETHASONE [Concomitant]
     Active Substance: BETAMETHASONE
     Indication: RECTOSIGMOID CANCER
     Dosage: 1 MG, UNK
     Route: 048
  4. LASIX [Concomitant]
     Active Substance: FUROSEMIDE
     Dosage: 40 MG, UNK
     Route: 065
  5. KETALAR [Concomitant]
     Active Substance: KETAMINE HYDROCHLORIDE
     Dosage: 300 MG, UNK
     Route: 051
  6. LYRICA [Concomitant]
     Active Substance: PREGABALIN
     Dosage: 300 MG, UNK
  7. METHADONE [Suspect]
     Active Substance: METHADONE HYDROCHLORIDE
     Dosage: 30 MG (DAILY DOSE 90 MG), UNK
     Route: 048
     Dates: start: 20140728, end: 20140804
  8. METHADONE [Suspect]
     Active Substance: METHADONE HYDROCHLORIDE
     Indication: CANCER PAIN
     Dosage: 15 MG (DAILY DOSE 45 MG), UNK
     Route: 048
     Dates: start: 20140715, end: 20140722
  9. METHADONE [Suspect]
     Active Substance: METHADONE HYDROCHLORIDE
     Dosage: 25 MG (DAILY DOSE 75 MG), UNK
     Route: 048
     Dates: start: 20140725, end: 20140728
  10. TAKEPRON [Concomitant]
     Active Substance: LANSOPRAZOLE
     Dosage: 15 MG PROPHYLAXIS, UNK
     Route: 048
  11. ROHYPNOL [Concomitant]
     Active Substance: FLUNITRAZEPAM
     Dosage: 2 MG, UNK
     Route: 048

REACTIONS (1)
  - Malignant neoplasm progression [Fatal]

NARRATIVE: CASE EVENT DATE: 20140808
